FAERS Safety Report 4539026-6 (Version None)
Quarter: 2004Q4

REPORT INFORMATION
  Report Type: 
  Country: None (occurrence: None)
  Receive Date: 20041222
  Receipt Date: 20041213
  Transmission Date: 20050328
  Serious: Yes (Hospitalization)
  Sender: FDA-Public Use
  Company Number: FABR-10912

PATIENT
  Age: 55 Year
  Sex: Male
  Weight: 70.3 kg

DRUGS (1)
  1. FABRAZYME [Suspect]
     Indication: FABRY'S DISEASE
     Dosage: 70 MG Q2WKS IV
     Route: 042
     Dates: start: 20030714

REACTIONS (6)
  - AGGRESSION [None]
  - CEREBROVASCULAR ACCIDENT [None]
  - DISORIENTATION [None]
  - DYSPNOEA [None]
  - HEADACHE [None]
  - PYREXIA [None]
